FAERS Safety Report 7080954-8 (Version None)
Quarter: 2010Q4

REPORT INFORMATION
  Report Type: 
  Country: None (occurrence: None)
  Receive Date: 20101102
  Receipt Date: 20101102
  Transmission Date: 20110411
  Serious: No
  Sender: FDA-Public Use
  Company Number: None

PATIENT
  Age: 26 Year
  Sex: Female
  Weight: 56.6996 kg

DRUGS (2)
  1. DETROL [Suspect]
     Indication: NEUROGENIC BLADDER
     Dosage: PRIOR TO 2006
  2. VESICARE [Suspect]
     Indication: NEUROGENIC BLADDER
     Dosage: PRIOR TO 2006

REACTIONS (1)
  - MUSCLE SPASMS [None]
